FAERS Safety Report 20665935 (Version 1)
Quarter: 2022Q2

REPORT INFORMATION
  Report Type: Spontaneous
  Country: US (occurrence: US)
  Receive Date: 20220403
  Receipt Date: 20220403
  Transmission Date: 20220721
  Serious: Yes (Death, Other)
  Sender: FDA-Public Use
  Company Number: US-BRISTOL-MYERS SQUIBB COMPANY-BMS-2022-039776

PATIENT
  Age: 76 Year
  Sex: Male

DRUGS (15)
  1. ELIQUIS [Suspect]
     Active Substance: APIXABAN
     Indication: Product used for unknown indication
     Dosage: 5 MILLIGRAM, BID
     Route: 048
  2. ALFUZOSIN [Concomitant]
     Active Substance: ALFUZOSIN
     Indication: Product used for unknown indication
     Dosage: 10 MILLIGRAM TAKE 1 TABLET BY ORAL ROUTE EVERY DAY
     Route: 048
     Dates: start: 20210712
  3. AMITRIPTYLINE [Concomitant]
     Active Substance: AMITRIPTYLINE
     Indication: Product used for unknown indication
     Dosage: 100 MILLIGRAM TAKE 1 TABLET BY ORAL ROUTE EVERY DAY AT
     Route: 048
     Dates: start: 20160920
  4. ATORVASTATIN [Concomitant]
     Active Substance: ATORVASTATIN
     Indication: Product used for unknown indication
     Dosage: 80 MILLIGRAM TAKE ONE TABLET BY MOUTH DAILY
     Route: 048
     Dates: start: 20210128
  5. CARBIDOPA\LEVODOPA [Concomitant]
     Active Substance: CARBIDOPA\LEVODOPA
     Indication: Product used for unknown indication
     Dosage: TAKE 2 TABLET BY ORAL ROUTE 3 TIMES EVERY DAY
     Route: 048
     Dates: start: 20210318
  6. CARBIDOPA\LEVODOPA [Concomitant]
     Active Substance: CARBIDOPA\LEVODOPA
     Dosage: TAKE 2 TABLET BY ORAL ROUTE 2 TIMES EVERY DAY EXTENDED RELEASE
     Route: 048
  7. DONEPEZIL [Concomitant]
     Active Substance: DONEPEZIL
     Indication: Product used for unknown indication
     Dosage: 5 MILLIGRAM TAKE 1 TABLET BY ORAL ROUTE EVERY MORNING
     Route: 048
     Dates: start: 20200730
  8. FINASTERIDE [Concomitant]
     Active Substance: FINASTERIDE
     Indication: Product used for unknown indication
     Dosage: 5 MILLIGRAM TAKE 1 TABLET BY ORAL ROUTE EVERY DAY
     Route: 048
     Dates: start: 20190118
  9. FLUDROCORTISONE [Concomitant]
     Active Substance: FLUDROCORTISONE
     Indication: Product used for unknown indication
     Dosage: 0.1 MILLIGRAM TAKE 2 TABLET BY ORAL ROUTE EVERY DAY
     Route: 048
  10. FOLIC ACID [Concomitant]
     Active Substance: FOLIC ACID
     Indication: Product used for unknown indication
     Dosage: 1 MILLIGRAM TAKE 1 TABLET BY ORAL ROUTE EVERY DAY WITH METHOTREXATE
     Route: 048
     Dates: start: 20210128
  11. FUROSEMIDE [Concomitant]
     Active Substance: FUROSEMIDE
     Indication: Product used for unknown indication
     Dosage: 40 MILLIGRAM TAKE 1 TABLET BY ORAL ROUTE 2 TIMES EVERY DAY AS NEEDED
     Route: 048
     Dates: start: 20210712
  12. IRON [Concomitant]
     Active Substance: IRON
     Indication: Product used for unknown indication
     Dosage: 65 MILLIGRAM TAKE 1 TABLET BY ORAL ROUTE 2 TIMES EVERY DAY
     Route: 048
     Dates: start: 20200730
  13. METHOTREXATE SODIUM [Concomitant]
     Active Substance: METHOTREXATE SODIUM
     Indication: Product used for unknown indication
     Dosage: 2.5 MILLIGRAM TAKE 4 TABLET QWK (WEDNESDAY NIGHT)
     Route: 048
     Dates: start: 20150202
  14. NITROSTAT [Concomitant]
     Active Substance: NITROGLYCERIN
     Indication: Product used for unknown indication
     Dosage: 0.1 MILLIGRAM PLACE 1 TABLET BY SUBLINGUAL ROUTE AT THE 1ST SIGN OF ATTACK, MAY REPEAT EVERY 5 MIN U
     Route: 048
     Dates: start: 20190523
  15. OMEPRAZOLE [Concomitant]
     Active Substance: OMEPRAZOLE
     Indication: Product used for unknown indication
     Dosage: 40 MILLIGRAM TAKE 1 CAPSULE BY ORAL ROUTE 2 TIMES EVERY DAY BEFORE MEAL
     Route: 048
     Dates: start: 20200730

REACTIONS (12)
  - Hypotension [Unknown]
  - Asthenia [Unknown]
  - Fatigue [Unknown]
  - Dyspnoea exertional [Unknown]
  - Oedema peripheral [Unknown]
  - Decreased appetite [Unknown]
  - Dehydration [Unknown]
  - Somnolence [Unknown]
  - Dysphagia [Unknown]
  - Incontinence [Unknown]
  - Dizziness [Unknown]
  - Death [Fatal]

NARRATIVE: CASE EVENT DATE: 20220209
